FAERS Safety Report 4502285-X (Version None)
Quarter: 2004Q4

REPORT INFORMATION
  Report Type: 
  Country: None (occurrence: None)
  Receive Date: 20041116
  Receipt Date: 20041108
  Transmission Date: 20050328
  Serious: Yes (Death)
  Sender: FDA-Public Use
  Company Number: FR-BRISTOL-MYERS SQUIBB COMPANY-12758181

PATIENT
  Age: 45 Year
  Sex: Male

DRUGS (2)
  1. PARAPLATIN [Suspect]
     Indication: LUNG NEOPLASM MALIGNANT
     Dosage: C2: 20-NOV-2003
     Route: 042
     Dates: start: 20031014, end: 20031120
  2. GEMZAR [Suspect]
     Indication: LUNG NEOPLASM MALIGNANT
     Route: 042
     Dates: start: 20031014, end: 20031120

REACTIONS (1)
  - TUMOUR LYSIS SYNDROME [None]
